FAERS Safety Report 17605502 (Version 1)
Quarter: 2020Q1

REPORT INFORMATION
  Report Type: Spontaneous
  Country: US (occurrence: US)
  Receive Date: 20200331
  Receipt Date: 20200331
  Transmission Date: 20200409
  Serious: No
  Sender: FDA-Public Use
  Company Number: US-SA-2020SA077835

PATIENT
  Sex: Female

DRUGS (4)
  1. XELJANZ XR [Concomitant]
     Active Substance: TOFACITINIB CITRATE
     Indication: RHEUMATOID ARTHRITIS
     Dosage: 11 MG, QD
     Dates: start: 20190609
  2. KEVZARA [Suspect]
     Active Substance: SARILUMAB
  3. METHOTREXATE. [Concomitant]
     Active Substance: METHOTREXATE
  4. STELARA [Concomitant]
     Active Substance: USTEKINUMAB

REACTIONS (1)
  - Hypersensitivity [Unknown]
